FAERS Safety Report 10171921 (Version 2)
Quarter: 2014Q2

REPORT INFORMATION
  Report Type: Report from Study
  Country: US (occurrence: US)
  Receive Date: 20140515
  Receipt Date: 20140515
  Transmission Date: 20141212
  Serious: Yes (Other)
  Sender: FDA-Public Use
  Company Number: US-PFIZER INC-2011093596

PATIENT
  Age: 62 Year
  Sex: Female
  Weight: 68 kg

DRUGS (8)
  1. LIPITOR [Suspect]
     Indication: HYPERTENSION
     Dosage: 10 MG, DAILY
     Route: 048
  2. LIPITOR [Suspect]
     Indication: BLOOD CHOLESTEROL INCREASED
  3. LYRICA [Suspect]
     Dosage: 75 MG, 1 TABLET TWICE DAILY
  4. PRINIVIL [Concomitant]
  5. SYNTHROID [Concomitant]
     Dosage: UNK
  6. LASIX [Concomitant]
     Dosage: UNK
  7. KLOR-CON [Concomitant]
     Dosage: UNK
  8. GUANFACINE [Concomitant]
     Dosage: UNK

REACTIONS (4)
  - Breast cancer female [Recovering/Resolving]
  - Neoplasm malignant [Unknown]
  - Renal failure acute [Unknown]
  - Abasia [Unknown]
